FAERS Safety Report 5105379-3 (Version None)
Quarter: 2006Q3

REPORT INFORMATION
  Report Type: 
  Country: None (occurrence: None)
  Receive Date: 20060731
  Receipt Date: 20051128
  Transmission Date: 20061208
  Serious: Yes (Hospitalization)
  Sender: FDA-Public Use
  Company Number: US-JNJFOC-20051200294

PATIENT
  Age: 57 Year
  Sex: Female
  Weight: 88.905 kg

DRUGS (2)
  1. RISPERDAL [Suspect]
     Indication: ANXIETY
     Dosage: 0.5 MG, 2 IN 1 DAY, ORAL
     Route: 048
     Dates: start: 20050901, end: 20051028
  2. RISPERDAL [Suspect]
     Indication: DEPRESSION
     Dosage: 0.5 MG, 2 IN 1 DAY, ORAL
     Route: 048
     Dates: start: 20050901, end: 20051028

REACTIONS (1)
  - TACHYCARDIA [None]
